FAERS Safety Report 13272964 (Version 1)
Quarter: 2017Q1

REPORT INFORMATION
  Report Type: Spontaneous
  Country: US (occurrence: US)
  Receive Date: 20170227
  Receipt Date: 20170227
  Transmission Date: 20170428
  Serious: Yes (Death, Hospitalization)
  Sender: FDA-Public Use
  Company Number: US-PFIZER INC-2017081068

PATIENT
  Age: 85 Year
  Sex: Female
  Weight: 64 kg

DRUGS (1)
  1. IBRANCE [Suspect]
     Active Substance: PALBOCICLIB
     Indication: BREAST CANCER METASTATIC
     Dosage: 75 MG, CYCLIC (75MG ONCE EVERY OTHER DAY FOR 3 WEEKS, THEN OFF FOR ONE WEEK)
     Dates: start: 201608

REACTIONS (2)
  - Syncope [Unknown]
  - Death [Fatal]

NARRATIVE: CASE EVENT DATE: 201611
